FAERS Safety Report 10766089 (Version 1)
Quarter: 2015Q1

REPORT INFORMATION
  Report Type: Spontaneous
  Country: US (occurrence: US)
  Receive Date: 20150205
  Receipt Date: 20150205
  Transmission Date: 20150721
  Serious: No
  Sender: FDA-Public Use
  Company Number: US-PFIZER INC-2015045160

PATIENT
  Age: 76 Year
  Sex: Male
  Weight: 70.3 kg

DRUGS (14)
  1. METAXALONE. [Suspect]
     Active Substance: METAXALONE
     Indication: MUSCLE INJURY
  2. METAXALONE. [Suspect]
     Active Substance: METAXALONE
     Indication: PAIN IN EXTREMITY
  3. NORVASC [Concomitant]
     Active Substance: AMLODIPINE BESYLATE
     Dosage: 5 MG, UNK
  4. LISINOPRIL. [Concomitant]
     Active Substance: LISINOPRIL
     Dosage: 20 MG, UNK
  5. METAXALONE. [Suspect]
     Active Substance: METAXALONE
     Indication: KNEE ARTHROPLASTY
  6. METAXALONE. [Suspect]
     Active Substance: METAXALONE
     Indication: MUSCLE DISORDER
     Dosage: 800 MG, AS NEEDED
     Route: 048
  7. OMEPRAZOLE. [Concomitant]
     Active Substance: OMEPRAZOLE
     Dosage: 20 MG, UNK
  8. CINNAMON. [Concomitant]
     Active Substance: CINNAMON
  9. FENOFIBRATE. [Concomitant]
     Active Substance: FENOFIBRATE
     Dosage: 160 MG, UNK
  10. CRESTOR [Concomitant]
     Active Substance: ROSUVASTATIN CALCIUM
     Dosage: 40 MG, UNK
  11. ATENOLOL. [Concomitant]
     Active Substance: ATENOLOL
     Dosage: 50 MG, UNK
  12. BABY ASPIRIN [Concomitant]
     Active Substance: ASPIRIN
  13. GLIPIZIDE. [Concomitant]
     Active Substance: GLIPIZIDE
     Dosage: 10 MG, UNK
  14. PLAVIX [Concomitant]
     Active Substance: CLOPIDOGREL BISULFATE
     Dosage: 75 MG, UNK

REACTIONS (4)
  - Hypertension [Not Recovered/Not Resolved]
  - Agitation [Unknown]
  - Somnolence [Unknown]
  - Insomnia [Not Recovered/Not Resolved]
